FAERS Safety Report 20843547 (Version 1)
Quarter: 2022Q2

REPORT INFORMATION
  Report Type: Report from Study
  Country: US (occurrence: None)
  Receive Date: 20220518
  Receipt Date: 20220518
  Transmission Date: 20220721
  Serious: Yes (Hospitalization)
  Sender: FDA-Public Use
  Company Number: US-ROCHE-3093997

PATIENT
  Age: 78 Year
  Sex: Female

DRUGS (4)
  1. BEVACIZUMAB [Suspect]
     Active Substance: BEVACIZUMAB
     Indication: Ovarian epithelial cancer
     Dosage: 03/APR/2013, 20/NOV/2014: LAST DOSE ADMINISTERED
     Route: 042
     Dates: start: 20130214
  2. PACLITAXEL [Suspect]
     Active Substance: PACLITAXEL
     Indication: Ovarian epithelial cancer
     Dosage: 03/MAR/2013, 03/APR/2013, 20/NOV/2014:DATE OF LAST DOSE ADMINISTERED
     Route: 042
     Dates: start: 20130214
  3. CARBOPLATIN [Suspect]
     Active Substance: CARBOPLATIN
     Indication: Ovarian epithelial cancer
     Dosage: 03/MAR/2013, 03/APR/2013, 20/NOV/2014:DATE OF LAST DOSE ADMINISTERED
     Route: 065
     Dates: start: 20130214
  4. NEULASTA [Concomitant]
     Active Substance: PEGFILGRASTIM
     Dates: start: 20130404

REACTIONS (9)
  - Dyspnoea [Not Recovered/Not Resolved]
  - Hypoalbuminaemia [Not Recovered/Not Resolved]
  - Hyponatraemia [Recovered/Resolved]
  - Hypocalcaemia [Not Recovered/Not Resolved]
  - Hypophosphataemia [Not Recovered/Not Resolved]
  - Respiratory failure [Not Recovered/Not Resolved]
  - Hypoxia [Recovered/Resolved]
  - Hypotension [Not Recovered/Not Resolved]
  - Sepsis [Not Recovered/Not Resolved]

NARRATIVE: CASE EVENT DATE: 20130511
